FAERS Safety Report 5974146-0 (Version None)
Quarter: 2008Q4

REPORT INFORMATION
  Report Type: 
  Country: None (occurrence: None)
  Receive Date: 20081201
  Receipt Date: 20081121
  Transmission Date: 20090506
  Serious: Yes (Hospitalization, Other)
  Sender: FDA-Public Use
  Company Number: US-PFIZER INC-2008008630

PATIENT
  Age: 47 Year
  Sex: Male
  Weight: 106.6 kg

DRUGS (5)
  1. CHANTIX [Suspect]
     Indication: SMOKING CESSATION THERAPY
     Dates: start: 20071216, end: 20080112
  2. VIAGRA [Suspect]
     Indication: ERECTILE DYSFUNCTION
  3. GEODON [Concomitant]
  4. WELLBUTRIN [Concomitant]
  5. KLONOPIN [Concomitant]

REACTIONS (24)
  - ABNORMAL DREAMS [None]
  - ANHEDONIA [None]
  - BRAIN INJURY [None]
  - CONFUSIONAL STATE [None]
  - CRYING [None]
  - DECREASED INTEREST [None]
  - DEPRESSED MOOD [None]
  - DRUG INEFFECTIVE [None]
  - DRUG WITHDRAWAL SYNDROME [None]
  - DRY MOUTH [None]
  - EMOTIONAL DISORDER [None]
  - FEAR [None]
  - FEELING ABNORMAL [None]
  - HEART RATE INCREASED [None]
  - INTENTIONAL SELF-INJURY [None]
  - MENTAL DISORDER [None]
  - PANIC ATTACK [None]
  - PERSONALITY DISORDER [None]
  - PSYCHIATRIC SYMPTOM [None]
  - REGRESSIVE BEHAVIOUR [None]
  - SUICIDE ATTEMPT [None]
  - TOOTH DISORDER [None]
  - VISUAL IMPAIRMENT [None]
  - WEIGHT DECREASED [None]
